FAERS Safety Report 8819390 (Version 1)
Quarter: 2012Q4

REPORT INFORMATION
  Report Type: Spontaneous
  Country: US (occurrence: None)
  Receive Date: 20121004
  Receipt Date: 20121004
  Transmission Date: 20130627
  Serious: No
  Sender: FDA-Public Use
  Company Number: None

PATIENT
  Age: 54 Year
  Sex: Female
  Weight: 62.6 kg

DRUGS (1)
  1. TRAMADOL ER [Suspect]
     Indication: BACK PAIN
     Route: 048
     Dates: start: 20121001, end: 20121002

REACTIONS (12)
  - Hyperhidrosis [None]
  - Feeling hot [None]
  - Pruritus [None]
  - Arrhythmia [None]
  - Dizziness [None]
  - Confusional state [None]
  - Anxiety [None]
  - Chest discomfort [None]
  - Dyspnoea [None]
  - Paraesthesia [None]
  - Diarrhoea [None]
  - Vomiting [None]
